FAERS Safety Report 5080642-3 (Version None)
Quarter: 2006Q3

REPORT INFORMATION
  Report Type: 
  Country: None (occurrence: None)
  Receive Date: 20060809
  Receipt Date: 20060724
  Transmission Date: 20061208
  Serious: Yes (Hospitalization, Other)
  Sender: FDA-Public Use
  Company Number: 2006AL001959

PATIENT
  Age: 58 Year
  Sex: Male

DRUGS (13)
  1. METOCLOPRAMIDE TABLETS USP, 10 MG (PUREPAC)(METOCLOPRAMIDE TABLETS USP [Suspect]
     Dosage: 10 MG; TID
  2. GABAPENTIN [Suspect]
     Dosage: 300 MG; TID; PO
     Route: 048
  3. DICLOFENAC SODIUM [Suspect]
     Indication: MYALGIA
     Dosage: 50 MG; TID; PO
     Route: 048
     Dates: end: 20060301
  4. DEXAMETHASONE [Concomitant]
  5. INTERFERON GAMMA [Concomitant]
  6. MORPHINE SULFATE [Concomitant]
  7. LANSOPRAZOLE [Concomitant]
  8. ESCITALOPRAM [Concomitant]
  9. MOVICOL [Concomitant]
  10. CO-DANTHRAMER [Concomitant]
  11. SENNA [Concomitant]
  12. MAGNESIUM HYDROXIDE TAB [Concomitant]
  13. ORAMORPH SR [Concomitant]

REACTIONS (1)
  - PEPTIC ULCER [None]
